FAERS Safety Report 5176765-0 (Version None)
Quarter: 2006Q4

REPORT INFORMATION
  Report Type: 
  Country: None (occurrence: None)
  Receive Date: 20061218
  Receipt Date: 20061205
  Transmission Date: 20070319
  Serious: Yes (Life-Threatening, Hospitalization)
  Sender: FDA-Public Use
  Company Number: CH-BAYER-200616173GDS

PATIENT
  Age: 78 Year
  Sex: Male
  Weight: 74 kg

DRUGS (4)
  1. AVELOX [Suspect]
     Indication: BRONCHITIS ACUTE
     Dosage: TOTAL DAILY DOSE: 400 MG  UNIT DOSE: 400 MG
     Route: 048
     Dates: start: 20061110, end: 20061117
  2. LISINOPRIL [Concomitant]
     Indication: HYPERTENSION
     Route: 048
  3. ALLOPURINOL [Concomitant]
     Indication: HYPERURICAEMIA
     Dosage: TOTAL DAILY DOSE: 300 MG  UNIT DOSE: 300 MG
     Route: 048
  4. TORSEMIDE [Concomitant]
     Indication: HYPERTENSION
     Route: 048

REACTIONS (2)
  - AGRANULOCYTOSIS [None]
  - FEBRILE NEUTROPENIA [None]
